FAERS Safety Report 10516806 (Version 1)
Quarter: 2014Q4

REPORT INFORMATION
  Report Type: Other
  Country: BR (occurrence: BR)
  Receive Date: 20141014
  Receipt Date: 20141014
  Transmission Date: 20150528
  Serious: Yes (Death)
  Sender: FDA-Public Use
  Company Number: BR-BRISTOL-MYERS SQUIBB COMPANY-21461710

PATIENT
  Age: 30 Year
  Sex: Male

DRUGS (7)
  1. ETOPOSIDE. [Suspect]
     Active Substance: ETOPOSIDE
  2. CISPLATIN. [Suspect]
     Active Substance: CISPLATIN
  3. IFOSFAMIDE. [Suspect]
     Active Substance: IFOSFAMIDE
  4. PACLITAXEL. [Suspect]
     Active Substance: PACLITAXEL
  5. BLEOMYCIN [Suspect]
     Active Substance: BLEOMYCIN SULFATE
  6. VINBLASTINE [Suspect]
     Active Substance: VINBLASTINE
  7. GEMCITABINE [Suspect]
     Active Substance: GEMCITABINE\GEMCITABINE HYDROCHLORIDE
     Dosage: TOTAL DOSE 15000 MG/M2.

REACTIONS (1)
  - Thrombotic microangiopathy [Fatal]
